FAERS Safety Report 6196437-3 (Version None)
Quarter: 2009Q2

REPORT INFORMATION
  Report Type: 
  Country: None (occurrence: None)
  Receive Date: 20090520
  Receipt Date: 20090513
  Transmission Date: 20091009
  Serious: Yes (Death, Life-Threatening, Hospitalization)
  Sender: FDA-Public Use
  Company Number: AU-CELGENEUS-008-21880-09031615

PATIENT
  Sex: Female
  Weight: 53.8 kg

DRUGS (1)
  1. REVLIMID [Suspect]
     Indication: MULTIPLE MYELOMA
     Route: 048
     Dates: start: 20090128, end: 20090316

REACTIONS (9)
  - CHOLELITHIASIS [None]
  - CONVULSION [None]
  - ENCEPHALOPATHY [None]
  - HERPES ZOSTER [None]
  - INFECTION [None]
  - PANCREATITIS [None]
  - PNEUMONIA [None]
  - PNEUMONITIS [None]
  - THROMBOTIC THROMBOCYTOPENIC PURPURA [None]
